FAERS Safety Report 5732842-4 (Version None)
Quarter: 2008Q2

REPORT INFORMATION
  Report Type: 
  Country: None (occurrence: None)
  Receive Date: 20080507
  Receipt Date: 20080507
  Transmission Date: 20081010
  Serious: Yes (Other)
  Sender: FDA-Public Use
  Company Number: None

PATIENT
  Age: 6 Year
  Sex: Male
  Weight: 19.0511 kg

DRUGS (1)
  1. SINGULAIR [Suspect]
     Indication: ASTHMA
     Dosage: 5MG DAILY PO
     Route: 048

REACTIONS (11)
  - ABNORMAL BEHAVIOUR [None]
  - ABNORMAL DREAMS [None]
  - ANGER [None]
  - ANOREXIA [None]
  - DEPRESSED MOOD [None]
  - ENURESIS [None]
  - FATIGUE [None]
  - FEAR [None]
  - MOOD ALTERED [None]
  - PAIN IN EXTREMITY [None]
  - PERSONALITY CHANGE [None]
